FAERS Safety Report 22175765 (Version 1)
Quarter: 2023Q2

REPORT INFORMATION
  Report Type: Spontaneous
  Country: US (occurrence: US)
  Receive Date: 20230405
  Receipt Date: 20230405
  Transmission Date: 20230722
  Serious: No
  Sender: FDA-Public Use
  Company Number: US-BRISTOL-MYERS SQUIBB COMPANY-2023-047447

PATIENT
  Age: 57 Year
  Sex: Female
  Weight: 75.3 kg

DRUGS (1)
  1. POMALYST [Suspect]
     Active Substance: POMALIDOMIDE
     Indication: Plasma cell myeloma
     Dosage: 21 DAYSON,7 OFF
     Route: 048

REACTIONS (2)
  - Malaise [Recovered/Resolved]
  - Oropharyngeal pain [Recovered/Resolved]
